FAERS Safety Report 7212669-7 (Version None)
Quarter: 2011Q1

REPORT INFORMATION
  Report Type: 
  Country: None (occurrence: None)
  Receive Date: 20110106
  Receipt Date: 20101229
  Transmission Date: 20110831
  Serious: Yes (Other)
  Sender: FDA-Public Use
  Company Number: US-JNJFOC-20101209100

PATIENT
  Age: 59 Year
  Sex: Female
  Weight: 67.59 kg

DRUGS (7)
  1. BENAZEPRIL HYDROCHLORIDE AND HYDROCHLOROTHIAZIDE [Concomitant]
     Indication: PRODUCT USED FOR UNKNOWN INDICATION
     Route: 065
  2. CRESTOR [Concomitant]
     Indication: PRODUCT USED FOR UNKNOWN INDICATION
     Route: 065
  3. EMEND [Concomitant]
     Indication: PROPHYLAXIS OF NAUSEA AND VOMITING
     Route: 065
  4. EMEND [Concomitant]
     Indication: PREMEDICATION
     Route: 065
  5. SYNTHROID [Concomitant]
     Indication: PRODUCT USED FOR UNKNOWN INDICATION
     Route: 065
  6. DECADRON [Concomitant]
     Indication: PREMEDICATION
     Route: 065
  7. DOXIL [Suspect]
     Indication: BREAST CANCER
     Dosage: CYCLE 1
     Route: 042

REACTIONS (5)
  - RASH [None]
  - DYSPNOEA [None]
  - TACHYCARDIA [None]
  - URTICARIA [None]
  - INFUSION RELATED REACTION [None]
